FAERS Safety Report 25356908 (Version 1)
Quarter: 2025Q2

REPORT INFORMATION
  Report Type: Report from Study
  Country: TW (occurrence: TW)
  Receive Date: 20250526
  Receipt Date: 20250526
  Transmission Date: 20250716
  Serious: Yes (Death, Other)
  Sender: ROCHE
  Company Number: TW-ROCHE-10000289084

PATIENT

DRUGS (5)
  1. RITUXIMAB [Suspect]
     Active Substance: RITUXIMAB
     Indication: Diffuse large B-cell lymphoma
     Route: 065
  2. CYCLOPHOSPHAMIDE [Suspect]
     Active Substance: CYCLOPHOSPHAMIDE
     Indication: Diffuse large B-cell lymphoma
     Route: 065
  3. ADRIAMYCIN [Suspect]
     Active Substance: DOXORUBICIN HYDROCHLORIDE
     Indication: Diffuse large B-cell lymphoma
     Route: 065
  4. VINCRISTINE [Suspect]
     Active Substance: VINCRISTINE
     Indication: Diffuse large B-cell lymphoma
     Route: 065
  5. PREDNISOLONE [Suspect]
     Active Substance: PREDNISOLONE
     Indication: Diffuse large B-cell lymphoma
     Route: 065

REACTIONS (13)
  - Leukopenia [Unknown]
  - Haemoglobin abnormal [Unknown]
  - Platelet disorder [Unknown]
  - Infection [Unknown]
  - Neutrophil count abnormal [Unknown]
  - Fatigue [Unknown]
  - Thrombosis [Unknown]
  - Embolism [Unknown]
  - Hyponatraemia [Unknown]
  - Diarrhoea [Unknown]
  - Hypokalaemia [Unknown]
  - Dyspnoea [Unknown]
  - Death [Fatal]
